FAERS Safety Report 11861494 (Version 1)
Quarter: 2015Q4

REPORT INFORMATION
  Report Type: Spontaneous
  Country: IT (occurrence: IT)
  Receive Date: 20151222
  Receipt Date: 20151222
  Transmission Date: 20160305
  Serious: Yes (Hospitalization)
  Sender: FDA-Public Use
  Company Number: IT-FRI-1000081806

PATIENT
  Age: 83 Year
  Sex: Female

DRUGS (4)
  1. HUMALOG [Concomitant]
     Active Substance: INSULIN LISPRO
  2. NEBIVOLOL. [Suspect]
     Active Substance: NEBIVOLOL
     Indication: HYPERTENSION
     Dosage: 5 MG
     Route: 048
     Dates: start: 20100101
  3. GLICLAZIDE [Concomitant]
     Active Substance: GLICLAZIDE
  4. CARDIOASPIRIN [Concomitant]
     Active Substance: ASPIRIN

REACTIONS (3)
  - Atrioventricular block first degree [Recovering/Resolving]
  - Bradycardia [Recovering/Resolving]
  - Presyncope [Recovering/Resolving]

NARRATIVE: CASE EVENT DATE: 20150817
